FAERS Safety Report 10061918 (Version 1)
Quarter: 2014Q2

REPORT INFORMATION
  Report Type: Spontaneous
  Country: US (occurrence: US)
  Receive Date: 20140407
  Receipt Date: 20140407
  Transmission Date: 20141212
  Serious: Yes (Hospitalization, Other)
  Sender: FDA-Public Use
  Company Number: US-ASTELLAS-2014US003375

PATIENT
  Sex: Male

DRUGS (3)
  1. TARCEVA [Suspect]
     Indication: LUNG NEOPLASM MALIGNANT
     Dosage: 150 MG, UID/QD
     Route: 048
     Dates: start: 2009, end: 201311
  2. DILTIAZEM [Concomitant]
     Indication: BLOOD PRESSURE
     Dosage: UNK
     Route: 065
  3. ASPIRIN [Concomitant]
     Indication: PRODUCT USED FOR UNKNOWN INDICATION
     Dosage: 325 MG, UID/QD
     Route: 048

REACTIONS (4)
  - Neuroendocrine tumour [Unknown]
  - Lung cancer metastatic [Not Recovered/Not Resolved]
  - Gastric ulcer [Recovered/Resolved]
  - Rash [Recovering/Resolving]
